FAERS Safety Report 7044528-7 (Version None)
Quarter: 2010Q4

REPORT INFORMATION
  Report Type: 
  Country: None (occurrence: None)
  Receive Date: 20101014
  Receipt Date: 20100929
  Transmission Date: 20110411
  Serious: Yes (Other)
  Sender: FDA-Public Use
  Company Number: PHHY2010US55771

PATIENT
  Sex: Male

DRUGS (6)
  1. EXJADE [Suspect]
     Indication: CHRONIC LEUKAEMIA
     Dosage: 125 MG, QD
     Route: 048
     Dates: start: 20100817
  2. FELODIPINE [Concomitant]
  3. FUROSEMIDE [Concomitant]
     Dosage: 60 MG, QD
  4. METOPROLOL [Concomitant]
  5. POTASSIUM CHLORIDE [Concomitant]
  6. RED BLOOD CELLS [Concomitant]

REACTIONS (6)
  - BLOOD CREATININE INCREASED [None]
  - DYSPNOEA [None]
  - HAEMOGLOBIN DECREASED [None]
  - HEARING AID USER [None]
  - OEDEMA PERIPHERAL [None]
  - RENAL DISORDER [None]
